FAERS Safety Report 20833815 (Version 1)
Quarter: 2022Q2

REPORT INFORMATION
  Report Type: Spontaneous
  Country: CA (occurrence: CA)
  Receive Date: 20220516
  Receipt Date: 20220516
  Transmission Date: 20220720
  Serious: Yes (Other)
  Sender: FDA-Public Use
  Company Number: CA-PFIZER INC-202200695576

PATIENT
  Sex: Female

DRUGS (9)
  1. METHOTREXATE SODIUM [Suspect]
     Active Substance: METHOTREXATE SODIUM
     Route: 065
  2. RITUXIMAB [Suspect]
     Active Substance: RITUXIMAB
     Dosage: UNK
     Route: 042
  3. ACTEMRA [Suspect]
     Active Substance: TOCILIZUMAB
     Route: 065
  4. HUMIRA [Suspect]
     Active Substance: ADALIMUMAB
     Route: 050
  5. HYDROXYCHLOROQUINE [Suspect]
     Active Substance: HYDROXYCHLOROQUINE
     Route: 065
  6. REMICADE [Suspect]
     Active Substance: INFLIXIMAB
     Route: 065
  7. NEXIUM [Concomitant]
     Active Substance: ESOMEPRAZOLE MAGNESIUM
     Route: 065
  8. SYNTHROID [Concomitant]
     Active Substance: LEVOTHYROXINE SODIUM
     Route: 065
  9. DICLOFENAC [Concomitant]
     Active Substance: DICLOFENAC
     Route: 065

REACTIONS (7)
  - Drug intolerance [Unknown]
  - Hypertensive crisis [Unknown]
  - Interstitial lung disease [Unknown]
  - Abdominal pain [Unknown]
  - Hip arthroplasty [Unknown]
  - Joint arthroplasty [Unknown]
  - Liver disorder [Unknown]
